FAERS Safety Report 19595295 (Version 1)
Quarter: 2021Q3

REPORT INFORMATION
  Report Type: Other
  Country: ES (occurrence: ES)
  Receive Date: 20210722
  Receipt Date: 20210722
  Transmission Date: 20211014
  Serious: Yes (Other)
  Sender: FDA-Public Use
  Company Number: ES-ROCHE-2874123

PATIENT
  Age: 60 Year
  Sex: Female

DRUGS (13)
  1. VEMURAFENIB. [Suspect]
     Active Substance: VEMURAFENIB
     Indication: MALIGNANT MELANOMA
     Route: 065
  2. VEMURAFENIB. [Suspect]
     Active Substance: VEMURAFENIB
     Route: 065
  3. VEMURAFENIB. [Suspect]
     Active Substance: VEMURAFENIB
     Dosage: 480 MG MORNING DOSE AND 480 MG EVENING DOSE
     Route: 065
  4. VEMURAFENIB. [Suspect]
     Active Substance: VEMURAFENIB
     Route: 065
  5. VEMURAFENIB. [Suspect]
     Active Substance: VEMURAFENIB
     Dosage: 240 MG MORNING DOSE AND 240 MG EVENING DOSE
     Route: 065
  6. VEMURAFENIB. [Suspect]
     Active Substance: VEMURAFENIB
     Dosage: 480 MG MORNING DOSE AND 240 MG EVENING DOSE
     Route: 065
  7. VEMURAFENIB. [Suspect]
     Active Substance: VEMURAFENIB
     Dosage: 480 MG MORNING DOSE AND 480 MG EVENING DOSE
     Route: 065
  8. PREDNISONE. [Concomitant]
     Active Substance: PREDNISONE
  9. EBASTINE [Concomitant]
     Active Substance: EBASTINE
  10. VEMURAFENIB. [Suspect]
     Active Substance: VEMURAFENIB
     Dosage: 480 MG MORNING DOSE AND 480 MG EVENING DOSE
     Route: 065
  11. INTERFERON ALFA?2A [Suspect]
     Active Substance: INTERFERON ALFA-2A
     Indication: MALIGNANT MELANOMA
     Route: 065
  12. COBIMETINIB. [Concomitant]
     Active Substance: COBIMETINIB
  13. RANITIDINE. [Concomitant]
     Active Substance: RANITIDINE

REACTIONS (3)
  - Gastrointestinal toxicity [Unknown]
  - Drug reaction with eosinophilia and systemic symptoms [Unknown]
  - Weight decreased [Unknown]
